FAERS Safety Report 18026037 (Version 1)
Quarter: 2020Q3

REPORT INFORMATION
  Report Type: Report from Study
  Country: GT (occurrence: GT)
  Receive Date: 20200715
  Receipt Date: 20200715
  Transmission Date: 20201103
  Serious: Yes (Other)
  Sender: FDA-Public Use
  Company Number: NVSC2020GT197100

PATIENT
  Age: 81 Year
  Sex: Female

DRUGS (1)
  1. VYMADA [Suspect]
     Active Substance: SACUBITRIL\VALSARTAN
     Indication: PRODUCT USED FOR UNKNOWN INDICATION
     Dosage: 100 MG
     Route: 065

REACTIONS (6)
  - Diabetes mellitus [Unknown]
  - Gastritis [Unknown]
  - Hypertension [Unknown]
  - Decreased appetite [Unknown]
  - Eating disorder [Unknown]
  - Weight decreased [Unknown]
